FAERS Safety Report 5879556-8 (Version None)
Quarter: 2008Q3

REPORT INFORMATION
  Report Type: 
  Country: None (occurrence: None)
  Receive Date: 20080912
  Receipt Date: 20080903
  Transmission Date: 20090109
  Serious: Yes (Other)
  Sender: FDA-Public Use
  Company Number: BR-JNJFOC-20080901333

PATIENT
  Age: 29 Year
  Sex: Male
  Weight: 72 kg

DRUGS (4)
  1. TYLENOL (CAPLET) [Suspect]
     Indication: PAIN
     Route: 048
  2. TYLENOL (CAPLET) [Suspect]
     Indication: PYREXIA
     Route: 048
  3. TRIMEDAL [Suspect]
     Indication: NASOPHARYNGITIS
     Dosage: TWICE (1000 MG)
     Route: 048
  4. MUCOLIN [Concomitant]
     Indication: COUGH
     Route: 048

REACTIONS (1)
  - HALLUCINATION [None]
